FAERS Safety Report 10166964 (Version 1)
Quarter: 2014Q2

REPORT INFORMATION
  Report Type: Spontaneous
  Country: US (occurrence: None)
  Receive Date: 20140509
  Receipt Date: 20140509
  Transmission Date: 20141212
  Serious: Yes (Hospitalization)
  Sender: FDA-Public Use
  Company Number: None

PATIENT
  Age: 28 Year
  Sex: 0
  Weight: 60.78 kg

DRUGS (2)
  1. ABILIFY [Suspect]
     Indication: DEPRESSION
     Dosage: 2 PILLS TWICE DAILY 11/2 MONTH
  2. COGENTIN [Suspect]
     Indication: DEPRESSION
     Dosage: 1/2 MONTH 2 PILLS TWICE DAILY TAKEN BY MOUTH
     Route: 048

REACTIONS (1)
  - Hospitalisation [None]
